FAERS Safety Report 4587850-6 (Version None)
Quarter: 2005Q1

REPORT INFORMATION
  Report Type: 
  Country: None (occurrence: None)
  Receive Date: 20050125
  Receipt Date: 20040909
  Transmission Date: 20050727
  Serious: No
  Sender: FDA-Public Use
  Company Number: USA040977870

PATIENT
  Age: 81 Year
  Sex: Female

DRUGS (9)
  1. FORTEO [Suspect]
     Indication: OSTEOPOROSIS
     Dates: start: 20040903
  2. OXYCONTIN [Concomitant]
  3. DARVOCET-N 100 [Concomitant]
  4. VICODIN [Concomitant]
  5. ZOLOFT [Concomitant]
  6. ABILIFY [Concomitant]
  7. LESCOL [Concomitant]
  8. VITAMINS [Concomitant]
  9. CALCIUM GLUCONATE [Concomitant]

REACTIONS (3)
  - ASTHENIA [None]
  - FATIGUE [None]
  - FEAR [None]
